FAERS Safety Report 5290503-2 (Version None)
Quarter: 2007Q2

REPORT INFORMATION
  Report Type: 
  Country: None (occurrence: None)
  Receive Date: 20070409
  Receipt Date: 20070329
  Transmission Date: 20071010
  Serious: Yes (Other)
  Sender: FDA-Public Use
  Company Number: PHBS2007BE05580

PATIENT
  Age: 36 Year
  Sex: Female

DRUGS (3)
  1. ZOMETA [Suspect]
     Indication: LEUKAEMIA
     Dates: start: 20040101, end: 20050101
  2. STEOVIT D3 [Concomitant]
  3. CHEMOTHERAPEUTICS NOS [Concomitant]
     Dosage: 3 SESSIONS IN HOSPITAL, 1 SESSION AT HOME

REACTIONS (7)
  - GINGIVAL SWELLING [None]
  - IMPAIRED HEALING [None]
  - NECROSIS [None]
  - OEDEMA MOUTH [None]
  - OSTEONECROSIS [None]
  - PAIN IN JAW [None]
  - TOOTH EXTRACTION [None]
